FAERS Safety Report 6255005-5 (Version None)
Quarter: 2009Q3

REPORT INFORMATION
  Report Type: 
  Country: None (occurrence: None)
  Receive Date: 20090702
  Receipt Date: 20090626
  Transmission Date: 20100115
  Serious: Yes (Other)
  Sender: FDA-Public Use
  Company Number: US-ELI_LILLY_AND_COMPANY-US200905003280

PATIENT
  Age: 57 Year
  Sex: Male
  Weight: 136.5 kg

DRUGS (9)
  1. BYETTA [Suspect]
     Indication: TYPE 2 DIABETES MELLITUS
     Dosage: 10 UG, UNK
     Route: 058
     Dates: start: 20060101, end: 20090508
  2. LISINOPRIL HYDROCHLORTHIAZID [Concomitant]
     Dates: start: 20070101, end: 20080101
  3. COZAAR [Concomitant]
     Dates: start: 20050101
  4. METFORMIN HCL [Concomitant]
  5. VYTORIN [Concomitant]
  6. COREG [Concomitant]
  7. GLIMEPIRIDE [Concomitant]
  8. PLAVIX [Concomitant]
  9. ALDACTONE [Concomitant]

REACTIONS (2)
  - PANCREATITIS [None]
  - WEIGHT DECREASED [None]
